FAERS Safety Report 21628014 (Version 1)
Quarter: 2022Q4

REPORT INFORMATION
  Report Type: Spontaneous
  Country: JP (occurrence: JP)
  Receive Date: 20221122
  Receipt Date: 20221122
  Transmission Date: 20230113
  Serious: Yes (Other)
  Sender: FDA-Public Use
  Company Number: JP-PFIZER INC-202201313980

PATIENT
  Age: 55 Year
  Sex: Female

DRUGS (5)
  1. EPIRUBICIN HYDROCHLORIDE [Suspect]
     Active Substance: EPIRUBICIN HYDROCHLORIDE
     Indication: Breast cancer female
     Dosage: EC 90,600 MG/M2 (EVERY 3 WEEKS, 4 CYCLES)
  2. PACLITAXEL [Suspect]
     Active Substance: PACLITAXEL
     Indication: Breast cancer female
     Dosage: 80 MG/M2 (EVERY WEEK, 12 DOSES)
  3. TRASTUZUMAB [Suspect]
     Active Substance: TRASTUZUMAB
     Indication: Breast cancer female
     Dosage: FOR 1 YEAR
  4. CYCLOPHOSPHAMIDE [Suspect]
     Active Substance: CYCLOPHOSPHAMIDE
     Indication: Breast cancer female
     Dosage: EC 90,600 MG/M2 (EVERY 3 WEEKS, 4 CYCLES)
  5. TS-1 [Suspect]
     Active Substance: GIMERACIL\OTERACIL\TEGAFUR
     Indication: Breast cancer female
     Dosage: 120 MG 2 X 2 WEEKS, 1 WEEK TEMPORAL WITHDRAWAL, FOR 1 YEAR
     Route: 048

REACTIONS (1)
  - Pulmonary hypertension [Recovering/Resolving]
